FAERS Safety Report 5475999-5 (Version None)
Quarter: 2007Q4

REPORT INFORMATION
  Report Type: 
  Country: None (occurrence: None)
  Receive Date: 20071003
  Receipt Date: 20070921
  Transmission Date: 20080405
  Serious: Yes (Hospitalization)
  Sender: FDA-Public Use
  Company Number: FR-ROCHE-520328

PATIENT
  Age: 69 Year
  Sex: Female

DRUGS (4)
  1. ROCEPHIN [Suspect]
     Route: 042
     Dates: start: 20070729, end: 20070806
  2. HEXABRIX [Suspect]
     Indication: DRUG USE FOR UNKNOWN INDICATION
     Dosage: HEXABRIX 320.
     Route: 042
     Dates: start: 20070804, end: 20070804
  3. AMIKLIN [Suspect]
     Route: 042
     Dates: start: 20070731, end: 20070804
  4. FLAGYL [Suspect]
     Dosage: FORM: INJECTABLE SOLUTION.
     Route: 042
     Dates: start: 20070731, end: 20070806

REACTIONS (4)
  - DERMATITIS BULLOUS [None]
  - ERYTHEMA [None]
  - RASH PUSTULAR [None]
  - RASH VESICULAR [None]
